FAERS Safety Report 10627727 (Version 1)
Quarter: 2014Q4

REPORT INFORMATION
  Report Type: Spontaneous
  Country: JP (occurrence: JP)
  Receive Date: 20141205
  Receipt Date: 20141205
  Transmission Date: 20150529
  Serious: Yes (Hospitalization, Other)
  Sender: FDA-Public Use
  Company Number: JP-ACCORD-027418

PATIENT
  Age: 60 Year
  Sex: Male
  Weight: 71.1 kg

DRUGS (2)
  1. PACLITAXEL/PACLITAXEL LIPOSOME [Suspect]
     Active Substance: PACLITAXEL
     Indication: NON-SMALL CELL LUNG CANCER
     Dosage: 200 MG/ M2 TRI-WEEKLY??FIFTH CYCLE OF CBDCA+PTX
  2. CARBOPLATIN. [Suspect]
     Active Substance: CARBOPLATIN
     Indication: NON-SMALL CELL LUNG CANCER
     Dosage: AREA UNDER THE CURVE 6 MG/ML TRI WEEKLY??FIFTH CYCLE OF CBDCA+PTX

REACTIONS (9)
  - Respiratory distress [Unknown]
  - Renal impairment [Unknown]
  - Pneumonia bacterial [Unknown]
  - Disseminated intravascular coagulation [Unknown]
  - Septic shock [Unknown]
  - Malaise [Unknown]
  - Decreased appetite [Unknown]
  - Infection [Unknown]
  - Pancytopenia [Unknown]
